FAERS Safety Report 7870820-X (Version None)
Quarter: 2011Q4

REPORT INFORMATION
  Report Type: 
  Country: None (occurrence: None)
  Receive Date: 20111027
  Receipt Date: 20111013
  Transmission Date: 20120403
  Serious: Yes (Hospitalization)
  Sender: FDA-Public Use
  Company Number: DSJ-2011-22062

PATIENT
  Age: 62 Year
  Sex: Female

DRUGS (5)
  1. PREMINENT (HYDROCHLOROTHIAZIDE, LOSARTAN POTASSIUM) (TABLET) [Concomitant]
  2. ADALT L (NIFEDIPINE) [Concomitant]
  3. CALBLOCK (AZELNIDIPINE) [Concomitant]
  4. OLMESARTAN MEDOXOMIL [Suspect]
     Indication: ESSENTIAL HYPERTENSION
     Dosage: 10 MG, PER ORAL; 20 MG, PER ORAL
     Route: 048
     Dates: start: 20101102
  5. OLMESARTAN MEDOXOMIL [Suspect]
     Indication: ESSENTIAL HYPERTENSION
     Dosage: 10 MG, PER ORAL; 20 MG, PER ORAL
     Route: 048
     Dates: start: 20100907, end: 20101101

REACTIONS (2)
  - WRIST FRACTURE [None]
  - OVARIAN NEOPLASM [None]
